FAERS Safety Report 21119735 (Version 1)
Quarter: 2022Q3

REPORT INFORMATION
  Report Type: Spontaneous
  Country: US (occurrence: None)
  Receive Date: 20220721
  Receipt Date: 20220721
  Transmission Date: 20221027
  Serious: Yes (Other)
  Sender: FDA-Public Use
  Company Number: None

PATIENT
  Age: 36 Year
  Sex: Male
  Weight: 64.6 kg

DRUGS (1)
  1. TIANEPTINE [Suspect]
     Active Substance: TIANEPTINE
     Indication: Depression
     Dosage: FREQUENCY : DAILY;?
     Route: 048

REACTIONS (7)
  - Drug withdrawal syndrome [None]
  - Pain [None]
  - Pain [None]
  - Anxiety [None]
  - Agitation [None]
  - Intentional overdose [None]
  - Drug abuse [None]

NARRATIVE: CASE EVENT DATE: 20220720
